FAERS Safety Report 9284609 (Version 3)
Quarter: 2013Q2

REPORT INFORMATION
  Report Type: Spontaneous
  Country: BR (occurrence: BR)
  Receive Date: 20130513
  Receipt Date: 20130603
  Transmission Date: 20140414
  Serious: Yes (Hospitalization)
  Sender: FDA-Public Use
  Company Number: BR-B.I. PHARMACEUTICALS,INC./RIDGEFIELD-2013-BR-00522BR

PATIENT
  Age: 70 Year
  Sex: Female

DRUGS (7)
  1. SPIRIVA RESPIMAT [Suspect]
     Indication: CHRONIC OBSTRUCTIVE PULMONARY DISEASE
     Dosage: 2.5 MCG
     Route: 055
     Dates: start: 2012, end: 2012
  2. DUOVENT [Suspect]
     Indication: CHRONIC OBSTRUCTIVE PULMONARY DISEASE
     Dosage: IPRATROPIUM BROMIDE 0,02MG + FENOTEROL HYDROBROMIDE 0,05MG
     Route: 055
     Dates: start: 2009, end: 2012
  3. DUOVENT [Suspect]
     Dosage: PRATROPIUM BROMIDE 0,02MG + FENOTEROL HYDROBROMIDE 0,05MG
     Route: 055
     Dates: start: 2013
  4. NIMESULIDA [Concomitant]
     Indication: SPINAL PAIN
  5. LABIRIN [Concomitant]
     Indication: DIZZINESS
  6. AVAMYS [Concomitant]
     Indication: NASAL DRYNESS
  7. MOTILIUM [Concomitant]
     Indication: ABDOMINAL DISCOMFORT

REACTIONS (3)
  - Chronic obstructive pulmonary disease [Recovered/Resolved]
  - Nasal dryness [Recovered/Resolved]
  - Cough [Recovered/Resolved]
